FAERS Safety Report 10038907 (Version 1)
Quarter: 2014Q1

REPORT INFORMATION
  Report Type: Spontaneous
  Country: US (occurrence: None)
  Receive Date: 20140306
  Receipt Date: 20140306
  Transmission Date: 20141002
  Serious: Yes (Other)
  Sender: FDA-Public Use
  Company Number: 163-21880-13063291

PATIENT
  Age: 66 Year
  Sex: Male
  Weight: 127.01 kg

DRUGS (2)
  1. REVLIMID [Suspect]
     Indication: PLASMA CELL MYELOMA
     Route: 048
     Dates: start: 201203
  2. AMITRIPTYLINE (AMITRIPTYLINE) [Concomitant]

REACTIONS (1)
  - Bone marrow failure [None]
